FAERS Safety Report 14279016 (Version 2)
Quarter: 2018Q1

REPORT INFORMATION
  Report Type: Report from Study
  Country: CN (occurrence: CN)
  Receive Date: 20171213
  Receipt Date: 20180223
  Transmission Date: 20180508
  Serious: Yes (Hospitalization, Other)
  Sender: FDA-Public Use
  Company Number: CN-CONCORDIA PHARMACEUTICALS INC.-E2B_00008740

PATIENT
  Age: 31 Year
  Sex: Male
  Weight: 62 kg

DRUGS (10)
  1. PREDNISOLONE. [Suspect]
     Active Substance: PREDNISOLONE
     Dates: start: 2015
  2. PREDNISOLONE. [Suspect]
     Active Substance: PREDNISOLONE
     Dosage: DIRECTLY AFTER TRANSPLANTATION
     Dates: start: 2015
  3. TACROLIMUS. [Suspect]
     Active Substance: TACROLIMUS
     Dosage: ADJUSTED TO MAINTAIN TARGET TROUGH LEVEL OF 7 TO 12 NG/ML IN THE ?RST MONTH, 6 TO 10 NG/ML DURING TH
  4. PREDNISOLONE. [Suspect]
     Active Substance: PREDNISOLONE
     Indication: IMMUNOSUPPRESSANT DRUG THERAPY
     Dosage: 6 MONTHS AFTER TRANSPLANTATION
     Dates: start: 2015
  5. PREDNISOLONE. [Suspect]
     Active Substance: PREDNISOLONE
     Dosage: 10 MG/DAY FOR THE NEXT 5 MONTHS
     Dates: start: 2015
  6. PREDNISOLONE. [Suspect]
     Active Substance: PREDNISOLONE
     Dosage: 20 X0200A; MG PER DAY FOR THE REST OF THE ?RST MONTH FOLLOWING THE OPERATION
     Dates: start: 2015
  7. MYCOPHENOLATE MOFETIL. [Concomitant]
     Active Substance: MYCOPHENOLATE MOFETIL
     Indication: IMMUNOSUPPRESSANT DRUG THERAPY
     Dates: start: 2015
  8. MYCOPHENOLATE MOFETIL. [Concomitant]
     Active Substance: MYCOPHENOLATE MOFETIL
     Dates: start: 2015
  9. URALYT-U [Suspect]
     Active Substance: POTASSIUM CITRATE\TRISODIUM CITRATE DIHYDRATE
     Dosage: FROM THE NINTH DAY TO THE 17TH DAY AFTER SURGERY.THE DAILY DOSE WAS 4 STANDARD MEASURING SPOON (2.5
     Route: 048
     Dates: start: 2015
  10. TACROLIMUS. [Suspect]
     Active Substance: TACROLIMUS
     Indication: IMMUNOSUPPRESSANT DRUG THERAPY
     Dosage: ADJUSTED TO MAINTAIN TARGET TROUGH LEVEL OF 7 TO 12 NG/ML IN THE FIRST MONTH, 6 TO 10 NG/ML DURIN...
     Dates: start: 2015

REACTIONS (1)
  - Hyperkalaemia [Recovered/Resolved]
